FAERS Safety Report 18552593 (Version 3)
Quarter: 2020Q4

REPORT INFORMATION
  Report Type: Spontaneous
  Country: US (occurrence: US)
  Receive Date: 20201127
  Receipt Date: 20201222
  Transmission Date: 20210114
  Serious: Yes (Hospitalization, Other)
  Sender: FDA-Public Use
  Company Number: US-AUROBINDO-AUR-APL-2020-057468

PATIENT
  Age: 68 Year
  Sex: Male
  Weight: 65.8 kg

DRUGS (5)
  1. OXYGEN. [Concomitant]
     Active Substance: OXYGEN
     Indication: COVID-19
     Dosage: 2 LITER (1 MINUTE)
     Route: 065
  2. METHYLPREDNISOLONE. [Suspect]
     Active Substance: METHYLPREDNISOLONE
     Indication: HYPOXIA
  3. METHYLPREDNISOLONE. [Suspect]
     Active Substance: METHYLPREDNISOLONE
     Indication: COVID-19
     Dosage: 40 MILLIGRAM, 3 TIMES A DAY (HOSPITAL DAYS 4?6, 8?10)
     Route: 042
  4. TOCILIZUMAB. [Suspect]
     Active Substance: TOCILIZUMAB
     Indication: HYPOXIA
     Dosage: 8 MILLIGRAM/KILOGRAM (1 TOTAL)
     Route: 042
  5. TOCILIZUMAB. [Suspect]
     Active Substance: TOCILIZUMAB
     Indication: COVID-19

REACTIONS (9)
  - Staphylococcal infection [Recovered/Resolved]
  - Hypotension [Recovered/Resolved]
  - Streptococcal infection [Recovered/Resolved]
  - Bacteraemia [Recovered/Resolved]
  - Citrobacter infection [Recovered/Resolved]
  - Bacterial sepsis [Recovered/Resolved]
  - Pseudomonas infection [Recovered/Resolved]
  - Disseminated strongyloidiasis [Not Recovered/Not Resolved]
  - Meningitis bacterial [Recovered/Resolved]
